FAERS Safety Report 9913390 (Version 1)
Quarter: 2014Q1

REPORT INFORMATION
  Report Type: Spontaneous
  Country: US (occurrence: None)
  Receive Date: 20140214
  Receipt Date: 20140214
  Transmission Date: 20141002
  Serious: Yes (Other)
  Sender: FDA-Public Use
  Company Number: 2014SGN00087

PATIENT
  Sex: Male

DRUGS (1)
  1. ADCETRIS (BRENTUXIMAB VEDOTIN) INJECTION [Suspect]
     Indication: HODGKIN^S DISEASE
     Dosage: Q21D

REACTIONS (3)
  - Lymphoplasmacytoid lymphoma/immunocytoma [None]
  - Pancytopenia [None]
  - Bone marrow failure [None]
